FAERS Safety Report 20129118 (Version 1)
Quarter: 2021Q4

REPORT INFORMATION
  Report Type: Spontaneous
  Country: US (occurrence: US)
  Receive Date: 20211130
  Receipt Date: 20211130
  Transmission Date: 20220303
  Serious: No
  Sender: FDA-Public Use
  Company Number: US-GLAXOSMITHKLINE-US2021AMR243493

PATIENT
  Sex: Male
  Weight: 124.74 kg

DRUGS (1)
  1. ROPINIROLE [Suspect]
     Active Substance: ROPINIROLE
     Indication: Product used for unknown indication
     Dosage: UNK

REACTIONS (4)
  - Tremor [Unknown]
  - Impaired driving ability [Unknown]
  - Extra dose administered [Unknown]
  - Product dose omission issue [Unknown]
